FAERS Safety Report 19922127 (Version 1)
Quarter: 2021Q4

REPORT INFORMATION
  Report Type: Spontaneous
  Country: JP (occurrence: JP)
  Receive Date: 20211006
  Receipt Date: 20211006
  Transmission Date: 20220303
  Serious: Yes (Hospitalization, Other)
  Sender: FDA-Public Use
  Company Number: JP-ALVOGEN-2021-ALVOGEN-117613

PATIENT
  Age: 51 Year
  Sex: Female

DRUGS (8)
  1. DOXORUBICIN [Suspect]
     Active Substance: DOXORUBICIN
     Indication: Breast cancer
  2. CYCLOPHOSPHAMIDE [Suspect]
     Active Substance: CYCLOPHOSPHAMIDE
     Indication: Breast cancer
  3. AMPICILLIN [Concomitant]
     Active Substance: AMPICILLIN
     Indication: Pneumonia
  4. CILASTATIN SODIUM\IMIPENEM [Concomitant]
     Active Substance: CILASTATIN SODIUM\IMIPENEM
     Indication: Pneumonia
  5. AMIKACIN [Concomitant]
     Active Substance: AMIKACIN
     Indication: Pneumonia
  6. SITAFLOXACIN [Concomitant]
     Active Substance: SITAFLOXACIN
     Indication: Pneumonia
  7. FAROPENEM [Concomitant]
     Active Substance: FAROPENEM
     Indication: Pneumonia
  8. BUTETAMATE CITRATE [Concomitant]
     Indication: Pneumonia

REACTIONS (2)
  - Pneumonia [Recovered/Resolved]
  - Pyrexia [Recovered/Resolved]
